FAERS Safety Report 20598172 (Version 1)
Quarter: 2022Q1

REPORT INFORMATION
  Report Type: Spontaneous
  Country: GR (occurrence: GR)
  Receive Date: 20220315
  Receipt Date: 20220315
  Transmission Date: 20220423
  Serious: Yes (Death)
  Sender: FDA-Public Use
  Company Number: GR-BAYER-2022A037866

PATIENT
  Age: 62 Year
  Sex: Female

DRUGS (2)
  1. VITRAKVI [Suspect]
     Active Substance: LAROTRECTINIB
     Indication: Pancreatic carcinoma
     Dosage: UNK
  2. VITRAKVI [Suspect]
     Active Substance: LAROTRECTINIB
     Indication: Metastases to central nervous system

REACTIONS (1)
  - Pancreatic carcinoma [Fatal]
